FAERS Safety Report 24077006 (Version 1)
Quarter: 2024Q3

REPORT INFORMATION
  Report Type: Spontaneous
  Country: JP (occurrence: JP)
  Receive Date: 20240711
  Receipt Date: 20240711
  Transmission Date: 20241017
  Serious: No
  Sender: PIERRE FABRE MEDICAMENT
  Company Number: JP-PFM-2023-05054

PATIENT
  Age: 10 Month
  Sex: Male

DRUGS (1)
  1. PROPRANOLOL HYDROCHLORIDE [Suspect]
     Active Substance: PROPRANOLOL HYDROCHLORIDE
     Indication: Infantile haemangioma
     Dosage: 1.5 MG/KG, BID (2/DAY)
     Route: 048
     Dates: start: 20230405

REACTIONS (2)
  - Nasal congestion [Unknown]
  - Rhinorrhoea [Unknown]
